FAERS Safety Report 23334185 (Version 1)
Quarter: 2023Q4

REPORT INFORMATION
  Report Type: Spontaneous
  Country: US (occurrence: US)
  Receive Date: 20231223
  Receipt Date: 20231223
  Transmission Date: 20240110
  Serious: Yes (Hospitalization, Other)
  Sender: FDA-Public Use
  Company Number: US-MYLANLABS-2023M1135168

PATIENT
  Sex: Female

DRUGS (9)
  1. SILDENAFIL [Suspect]
     Active Substance: SILDENAFIL
     Indication: Product used for unknown indication
     Dosage: UNK
     Route: 065
  2. ORENITRAM [Suspect]
     Active Substance: TREPROSTINIL
     Indication: Pulmonary arterial hypertension
     Dosage: 6 MILLIGRAM, TID (1 TABLET OF 5 MG AND 1 MG EACH)
     Route: 048
     Dates: start: 202307
  3. ORENITRAM [Suspect]
     Active Substance: TREPROSTINIL
     Dosage: UNK
     Route: 048
     Dates: start: 202307
  4. ORENITRAM [Suspect]
     Active Substance: TREPROSTINIL
     Dosage: 7 MILLIGRAM, TID (1 TABLET OF 5 MG AND 2  TABLETS OF 1 MG)
     Route: 048
     Dates: start: 2023
  5. GAS-X [Suspect]
     Active Substance: DIMETHICONE
     Indication: Dyspepsia
     Dosage: UNK
     Route: 065
  6. FAMOTIDINE [Suspect]
     Active Substance: FAMOTIDINE
     Indication: Dyspepsia
     Dosage: 20 MILLIGRAM
     Route: 065
  7. AMBRISENTAN [Concomitant]
     Active Substance: AMBRISENTAN
     Dosage: UNK
     Route: 065
  8. ADEMPAS [Concomitant]
     Active Substance: RIOCIGUAT
     Dosage: UNK
     Route: 065
  9. BUMEX [Concomitant]
     Active Substance: BUMETANIDE
     Dosage: UNK
     Route: 065

REACTIONS (13)
  - Fluid retention [Unknown]
  - Appendicitis [Not Recovered/Not Resolved]
  - Heart rate increased [Unknown]
  - Abdominal discomfort [Not Recovered/Not Resolved]
  - Oedema peripheral [Not Recovered/Not Resolved]
  - Fatigue [Unknown]
  - Vision blurred [Unknown]
  - Headache [Unknown]
  - Nausea [Unknown]
  - Hypotension [Unknown]
  - Dizziness [Unknown]
  - Dyspepsia [Not Recovered/Not Resolved]
  - Abdominal distension [Not Recovered/Not Resolved]

NARRATIVE: CASE EVENT DATE: 20230101
